FAERS Safety Report 4920943-X (Version None)
Quarter: 2006Q1

REPORT INFORMATION
  Report Type: 
  Country: None (occurrence: None)
  Receive Date: 20060223
  Receipt Date: 20050922
  Transmission Date: 20060701
  Serious: Yes (Hospitalization)
  Sender: FDA-Public Use
  Company Number: US-MERCK-0509USA03639

PATIENT
  Age: 49 Year
  Sex: Male
  Weight: 103 kg

DRUGS (2)
  1. VIOXX [Suspect]
     Indication: EXOSTOSIS
     Route: 048
     Dates: start: 20030901, end: 20040313
  2. LIDODERM [Concomitant]
     Route: 065

REACTIONS (4)
  - ACUTE MYOCARDIAL INFARCTION [None]
  - ARTERIOSCLEROSIS CORONARY ARTERY [None]
  - BLOOD CHOLESTEROL INCREASED [None]
  - HYPERTENSION [None]
